FAERS Safety Report 7227149-2 (Version None)
Quarter: 2011Q1

REPORT INFORMATION
  Report Type: 
  Country: None (occurrence: None)
  Receive Date: 20110111
  Receipt Date: 20110111
  Transmission Date: 20110831
  Serious: Yes (Other)
  Sender: FDA-Public Use
  Company Number: None

PATIENT
  Sex: Female

DRUGS (2)
  1. BUPROPION XL 150 MG [Suspect]
     Indication: DISEASE RECURRENCE
     Dosage: 150 QD PO
     Route: 048
     Dates: start: 20101102, end: 20110108
  2. BUPROPION XL 150 MG [Suspect]
     Indication: MAJOR DEPRESSION
     Dosage: 150 QD PO
     Route: 048
     Dates: start: 20101102, end: 20110108

REACTIONS (3)
  - RETCHING [None]
  - HEADACHE [None]
  - PRODUCT QUALITY ISSUE [None]
